FAERS Safety Report 11603108 (Version 1)
Quarter: 2015Q4

REPORT INFORMATION
  Report Type: Spontaneous
  Country: US (occurrence: None)
  Receive Date: 20151005
  Receipt Date: 20151005
  Transmission Date: 20160304
  Serious: Yes (Other)
  Sender: FDA-Public Use
  Company Number: None

PATIENT
  Age: 39 Year
  Sex: Female
  Weight: 98.43 kg

DRUGS (11)
  1. GLYBURIDE. [Concomitant]
     Active Substance: GLYBURIDE
  2. MULTIVITAIN [Concomitant]
  3. PROTONIX [Concomitant]
     Active Substance: PANTOPRAZOLE SODIUM
  4. LYRICA [Concomitant]
     Active Substance: PREGABALIN
  5. ZYRTEC [Concomitant]
     Active Substance: CETIRIZINE HYDROCHLORIDE
  6. CINNAMON SUPPLEMENTS [Concomitant]
  7. BYDUREON [Suspect]
     Active Substance: EXENATIDE
     Indication: DIABETES MELLITUS INADEQUATE CONTROL
     Dosage: 2MG ?ONCE A WEEK ?INJECTED IN BACK ARM OR STOMACH
     Route: 042
     Dates: start: 20150909, end: 20150930
  8. METFORMIN [Concomitant]
     Active Substance: METFORMIN HYDROCHLORIDE
  9. BYDUREON [Concomitant]
     Active Substance: EXENATIDE
  10. FLONASE [Concomitant]
     Active Substance: FLUTICASONE PROPIONATE
  11. LISINOPRIL. [Concomitant]
     Active Substance: LISINOPRIL

REACTIONS (4)
  - Blood glucose increased [None]
  - Impaired work ability [None]
  - Product packaging quantity issue [None]
  - Malaise [None]

NARRATIVE: CASE EVENT DATE: 20150930
